FAERS Safety Report 12838938 (Version 2)
Quarter: 2016Q4

REPORT INFORMATION
  Report Type: Spontaneous
  Country: US (occurrence: US)
  Receive Date: 20161012
  Receipt Date: 20161110
  Transmission Date: 20170207
  Serious: No
  Sender: FDA-Public Use
  Company Number: US-PFIZER INC-2016469191

PATIENT
  Age: 74 Year
  Sex: Male

DRUGS (2)
  1. DYLOJECT [Suspect]
     Active Substance: DICLOFENAC SODIUM
     Indication: SHOULDER OPERATION
     Dosage: 37.5 MG, 1X/DAY
     Route: 042
     Dates: start: 20161019
  2. DICLOFENAC SODIUM. [Suspect]
     Active Substance: DICLOFENAC SODIUM
     Indication: PROCEDURAL PAIN
     Dosage: 37.5 MG, SINGLE
     Route: 042
     Dates: start: 20161005

REACTIONS (1)
  - Injection site pain [Recovered/Resolved]

NARRATIVE: CASE EVENT DATE: 20161005
